FAERS Safety Report 9352109 (Version 1)
Quarter: 2013Q2

REPORT INFORMATION
  Report Type: Spontaneous
  Country: US (occurrence: US)
  Receive Date: 20130617
  Receipt Date: 20130617
  Transmission Date: 20140414
  Serious: Yes (Death, Other)
  Sender: FDA-Public Use
  Company Number: US-TEVA-411728USA

PATIENT
  Age: 73 Year
  Sex: Female

DRUGS (1)
  1. IRBESARTAN [Suspect]
     Route: 065

REACTIONS (5)
  - Acute hepatic failure [Unknown]
  - Death [Fatal]
  - Abdominal pain [Unknown]
  - Urticaria [Unknown]
  - Liver function test abnormal [Unknown]
